FAERS Safety Report 6894397-0 (Version None)
Quarter: 2010Q3

REPORT INFORMATION
  Report Type: 
  Country: None (occurrence: None)
  Receive Date: 20100728
  Receipt Date: 20100722
  Transmission Date: 20110219
  Serious: Yes (Hospitalization)
  Sender: FDA-Public Use
  Company Number: 2010SP040216

PATIENT
  Age: 37 Year
  Sex: Female

DRUGS (1)
  1. INTRON A [Suspect]
     Indication: MALIGNANT MELANOMA
     Dosage: 3 MIU;TIW;SC
     Route: 058
     Dates: start: 20080609, end: 20091203

REACTIONS (5)
  - ASTHENIA [None]
  - INJECTION SITE ERYTHEMA [None]
  - ONYCHOMADESIS [None]
  - PERIPHERAL VASCULAR DISORDER [None]
  - PSORIASIS [None]
